FAERS Safety Report 25679539 (Version 1)
Quarter: 2025Q3

REPORT INFORMATION
  Report Type: Spontaneous
  Country: US (occurrence: US)
  Receive Date: 20250814
  Receipt Date: 20250814
  Transmission Date: 20251020
  Serious: Yes (Hospitalization)
  Sender: JOHNSON AND JOHNSON
  Company Number: US-JNJFOC-20250812143

PATIENT
  Age: 24 Year
  Sex: Male

DRUGS (16)
  1. CONCERTA [Suspect]
     Active Substance: METHYLPHENIDATE HYDROCHLORIDE
     Indication: Product used for unknown indication
     Route: 048
  2. INGREZZA [Suspect]
     Active Substance: VALBENAZINE DITOSYLATE
     Indication: Tardive dyskinesia
     Route: 048
     Dates: start: 20220614, end: 20220622
  3. INGREZZA [Suspect]
     Active Substance: VALBENAZINE DITOSYLATE
     Route: 048
     Dates: start: 20220623, end: 20221212
  4. INGREZZA [Suspect]
     Active Substance: VALBENAZINE DITOSYLATE
     Route: 048
     Dates: start: 20221213
  5. INGREZZA [Suspect]
     Active Substance: VALBENAZINE DITOSYLATE
     Route: 048
     Dates: start: 20220608, end: 20220614
  6. ALPRAZOLAM [Concomitant]
     Active Substance: ALPRAZOLAM
     Indication: Product used for unknown indication
     Route: 065
  7. AMOXICILLIN [Concomitant]
     Active Substance: AMOXICILLIN
     Indication: Product used for unknown indication
     Route: 065
  8. CAPLYTA [Concomitant]
     Active Substance: LUMATEPERONE
     Indication: Product used for unknown indication
     Route: 065
  9. FLONASE [Concomitant]
     Active Substance: FLUTICASONE PROPIONATE
     Indication: Product used for unknown indication
     Route: 065
  10. FLUOXETINE [Concomitant]
     Active Substance: FLUOXETINE HYDROCHLORIDE
     Indication: Product used for unknown indication
     Route: 065
  11. LEVOMEFOLIC ACID [Concomitant]
     Active Substance: LEVOMEFOLIC ACID
     Indication: Product used for unknown indication
     Route: 065
  12. OXCARBAZEPINE [Concomitant]
     Active Substance: OXCARBAZEPINE
     Indication: Product used for unknown indication
     Route: 065
  13. SULFAMETHOXAZOLE\TRIMETHOPRIM [Concomitant]
     Active Substance: SULFAMETHOXAZOLE\TRIMETHOPRIM
     Indication: Product used for unknown indication
     Route: 065
  14. VRAYLAR [Concomitant]
     Active Substance: CARIPRAZINE
     Indication: Product used for unknown indication
     Route: 065
  15. ZONISAMIDE [Concomitant]
     Active Substance: ZONISAMIDE
     Indication: Product used for unknown indication
     Route: 065
  16. ZYRTEC [Concomitant]
     Active Substance: CETIRIZINE HYDROCHLORIDE
     Indication: Product used for unknown indication
     Route: 065

REACTIONS (1)
  - Hospitalisation [Unknown]
